FAERS Safety Report 5121644-8 (Version None)
Quarter: 2006Q4

REPORT INFORMATION
  Report Type: 
  Country: None (occurrence: None)
  Receive Date: 20061003
  Receipt Date: 20060919
  Transmission Date: 20070319
  Serious: Yes (Other)
  Sender: FDA-Public Use
  Company Number: CHWYE713409JUN06

PATIENT
  Age: 52 Year
  Sex: Female

DRUGS (3)
  1. LORAZEPAM [Suspect]
     Dosage: ORAL
     Route: 048
     Dates: end: 20060101
  2. HALCION [Suspect]
     Dates: start: 20060101
  3. PREMARIN [Suspect]

REACTIONS (2)
  - DIARRHOEA [None]
  - WEIGHT DECREASED [None]
